FAERS Safety Report 4424585-4 (Version None)
Quarter: 2004Q3

REPORT INFORMATION
  Report Type: 
  Country: None (occurrence: None)
  Receive Date: 20040809
  Receipt Date: 20040722
  Transmission Date: 20050211
  Serious: Yes (Other)
  Sender: FDA-Public Use
  Company Number: 2004-DE-04065GD

PATIENT
  Sex: 0

DRUGS (5)
  1. METHOTREXATE [Suspect]
     Indication: PERIPHERAL BLOOD STEM CELL APHERESIS
  2. MITOGUAZON (MITOGUAZONE) [Suspect]
     Indication: PERIPHERAL BLOOD STEM CELL APHERESIS
  3. IFOSFAMIDE [Suspect]
     Indication: PERIPHERAL BLOOD STEM CELL APHERESIS
  4. ETOPOSIDE [Suspect]
     Indication: PERIPHERAL BLOOD STEM CELL APHERESIS
  5. GRANULOCYTE COLONY STIMULATING FACTOR (GRANULOCYTE COLONY STIMULATING [Suspect]
     Indication: PERIPHERAL BLOOD STEM CELL APHERESIS

REACTIONS (1)
  - DIFFUSE LARGE B-CELL LYMPHOMA RECURRENT [None]
